FAERS Safety Report 18342404 (Version 2)
Quarter: 2024Q1

REPORT INFORMATION
  Report Type: Report from Study
  Country: KR (occurrence: KR)
  Receive Date: 20201005
  Receipt Date: 20240108
  Transmission Date: 20240410
  Serious: Yes (Other)
  Sender: FDA-Public Use
  Company Number: KR-CELLTRION INC.-2020KR028360

PATIENT

DRUGS (1)
  1. RITUXIMAB [Suspect]
     Active Substance: RITUXIMAB
     Indication: Diffuse large B-cell lymphoma stage IV
     Dosage: FULL DOSE FOR 6-8 CYCLES

REACTIONS (2)
  - Diffuse large B-cell lymphoma recurrent [Unknown]
  - Treatment failure [Unknown]
